FAERS Safety Report 21991895 (Version 1)
Quarter: 2023Q1

REPORT INFORMATION
  Report Type: Other
  Country: AU (occurrence: AU)
  Receive Date: 20230214
  Receipt Date: 20230214
  Transmission Date: 20230417
  Serious: Yes (Hospitalization, Other)
  Sender: FDA-Public Use
  Company Number: AU-MAYNE PHARMA-2023MYN000240

PATIENT

DRUGS (21)
  1. ERYTHROMYCIN [Suspect]
     Active Substance: ERYTHROMYCIN
     Indication: Hypersensitivity
     Route: 065
  2. ARIPIPRAZOLE [Suspect]
     Active Substance: ARIPIPRAZOLE
     Indication: Schizophrenia
     Dosage: 30 MG, QD
  3. ARIPIPRAZOLE [Suspect]
     Active Substance: ARIPIPRAZOLE
     Dosage: 20 MG, QD
  4. CLOZAPINE [Suspect]
     Active Substance: CLOZAPINE
     Indication: Product used for unknown indication
     Dosage: 12.5 MG, QD
     Dates: start: 20220223, end: 20220224
  5. CLOZAPINE [Suspect]
     Active Substance: CLOZAPINE
     Dosage: 25 MG, QD
     Dates: start: 20220225, end: 20220227
  6. CLOZAPINE [Suspect]
     Active Substance: CLOZAPINE
     Dosage: UNK
     Dates: end: 20220301
  7. ASENAPINE [Concomitant]
     Active Substance: ASENAPINE
     Indication: Schizophrenia
     Dosage: 10 MG, QD
     Route: 060
  8. ASENAPINE [Concomitant]
     Active Substance: ASENAPINE
     Dosage: 20 MG, QD
     Route: 060
     Dates: start: 2018
  9. ASENAPINE [Concomitant]
     Active Substance: ASENAPINE
     Dosage: 30 MG, QD
     Route: 060
  10. ATORVASTATIN [Concomitant]
     Active Substance: ATORVASTATIN
     Indication: Prophylaxis
     Dosage: 40 MG, QD
  11. CLOMIPRAMINE [Concomitant]
     Active Substance: CLOMIPRAMINE
     Indication: Product used for unknown indication
     Dosage: 25 MG, QD
  12. CLOMIPRAMINE [Concomitant]
     Active Substance: CLOMIPRAMINE
     Dosage: 75 MG, QD
     Dates: start: 2016
  13. CLOMIPRAMINE [Concomitant]
     Active Substance: CLOMIPRAMINE
     Dosage: 125 MG, QD
     Dates: start: 201611
  14. CLOMIPRAMINE [Concomitant]
     Active Substance: CLOMIPRAMINE
     Dosage: 150 MG, QD
     Dates: start: 2018
  15. ELEVIT [MINERALS NOS;VITAMINS NOS] [Concomitant]
     Indication: Prophylaxis
     Dosage: 1 DF, QD
  16. GEMFIBROZIL [Concomitant]
     Active Substance: GEMFIBROZIL
     Indication: Hypercholesterolaemia
     Dosage: 600 MG, QD
  17. RISPERIDONE [Concomitant]
     Active Substance: RISPERIDONE
     Indication: Product used for unknown indication
     Dosage: 0.5 MG, QD
     Dates: start: 202111
  18. RISPERIDONE [Concomitant]
     Active Substance: RISPERIDONE
     Dosage: 1 MG, QD
  19. RISPERIDONE [Concomitant]
     Active Substance: RISPERIDONE
     Dosage: 4 MG, QD
     Dates: end: 20220124
  20. ASCORBIC ACID [Concomitant]
     Active Substance: ASCORBIC ACID
     Indication: Prophylaxis
     Dosage: 500 MG, QD
  21. FERROUS FUMARATE [Concomitant]
     Active Substance: FERROUS FUMARATE
     Indication: Iron deficiency anaemia

REACTIONS (12)
  - Myocarditis [Unknown]
  - Type 2 diabetes mellitus [Unknown]
  - Liver function test abnormal [Unknown]
  - COVID-19 [Unknown]
  - Iron deficiency anaemia [Unknown]
  - Leukopenia [Unknown]
  - Malaise [Unknown]
  - Cholelithiasis [Unknown]
  - Prostatomegaly [Unknown]
  - Pancreatic steatosis [Unknown]
  - Condition aggravated [Unknown]
  - Vomiting [Unknown]

NARRATIVE: CASE EVENT DATE: 20211005
